FAERS Safety Report 25769453 (Version 1)
Quarter: 2025Q3

REPORT INFORMATION
  Report Type: Spontaneous
  Country: CN (occurrence: CN)
  Receive Date: 20250906
  Receipt Date: 20250906
  Transmission Date: 20251021
  Serious: Yes (Hospitalization, Other)
  Sender: NOVITIUM PHARMA
  Company Number: CN-NOVITIUMPHARMA-2025CNNVP02227

PATIENT
  Age: 26 Year
  Sex: Female

DRUGS (4)
  1. PREDNISONE [Suspect]
     Active Substance: PREDNISONE
     Indication: Methylenetetrahydrofolate reductase deficiency
  2. HYDROXYCHLOROQUINE SULFATE [Suspect]
     Active Substance: HYDROXYCHLOROQUINE SULFATE
     Indication: Methylenetetrahydrofolate reductase deficiency
  3. VITAMIN D NOS [Concomitant]
     Active Substance: CHOLECALCIFEROL\ERGOCALCIFEROL
     Indication: Methylenetetrahydrofolate reductase deficiency
  4. CALCITRIOL [Concomitant]
     Active Substance: CALCITRIOL
     Indication: Methylenetetrahydrofolate reductase deficiency

REACTIONS (2)
  - Acute generalised exanthematous pustulosis [Recovered/Resolved]
  - Exposure during pregnancy [Unknown]
